FAERS Safety Report 23418929 (Version 1)
Quarter: 2024Q1

REPORT INFORMATION
  Report Type: Other
  Country: US (occurrence: US)
  Receive Date: 20240118
  Receipt Date: 20240118
  Transmission Date: 20240410
  Serious: No
  Sender: FDA-Public Use
  Company Number: US-UROVANT SCIENCES GMBH-202311-URV-002259

PATIENT
  Sex: Female
  Weight: 81.179 kg

DRUGS (17)
  1. GEMTESA [Suspect]
     Active Substance: VIBEGRON
     Indication: Urinary incontinence
     Dosage: 75 MG, QD
     Route: 048
     Dates: start: 202311
  2. AMLODIPINE BESYLATE [Concomitant]
     Active Substance: AMLODIPINE BESYLATE
     Indication: Blood pressure measurement
     Dosage: 5 MG
  3. ASPIRIN [Concomitant]
     Active Substance: ASPIRIN
     Indication: Product used for unknown indication
     Dosage: 81 MG, QD, TABLET DELAYED RELEASE
     Route: 048
  4. COENZYME Q10 [Concomitant]
     Active Substance: DIETARY SUPPLEMENT\UBIDECARENONE
     Indication: Product used for unknown indication
     Dosage: 100 MG, QD, CAPSULE
     Route: 048
  5. GABAPENTIN [Concomitant]
     Active Substance: GABAPENTIN
     Indication: Product used for unknown indication
     Dosage: 600 MG, QD
     Route: 048
  6. ACETAMINOPHEN\HYDROCODONE [Concomitant]
     Active Substance: ACETAMINOPHEN\HYDROCODONE
     Indication: Product used for unknown indication
     Dosage: 1 TAB, Q8H IF NEEDED
  7. INFLIXIMAB [Concomitant]
     Active Substance: INFLIXIMAB
     Indication: Product used for unknown indication
     Dosage: 100 MG, Q8WK, INFUSE INTO A VENOUS CATHETER
  8. LISINOPRIL                         /00894002/ [Concomitant]
     Indication: Blood pressure measurement
     Dosage: 40 MG
     Dates: start: 20231102
  9. MAGNESIUM [Concomitant]
     Active Substance: MAGNESIUM
     Indication: Product used for unknown indication
     Dosage: UNK, QD
     Route: 048
  10. MENAQUINONE-7 [Concomitant]
     Indication: Product used for unknown indication
     Dosage: 100 MG, BID
     Route: 048
  11. OMEGA-3 FATTY ACIDS [Concomitant]
     Active Substance: OMEGA-3 FATTY ACIDS
     Indication: Product used for unknown indication
     Dosage: 2500 MG, BID, CAPSULE DELAYED-RELEASED
     Route: 048
  12. OMEPRAZOLE [Concomitant]
     Active Substance: OMEPRAZOLE
     Indication: Product used for unknown indication
     Dosage: 40 MG, QD, CAPSULE DELAYED-RELEASE
     Route: 048
  13. PHENAZOPYRIDINE                    /00073802/ [Concomitant]
     Indication: Bladder spasm
     Dosage: 200 MG, TID
     Route: 048
     Dates: start: 20031129
  14. PHENAZOPYRIDINE                    /00073802/ [Concomitant]
     Indication: Dysuria
  15. BIFIDOBACTERIUM ANIMALIS LACTIS [Concomitant]
     Active Substance: BIFIDOBACTERIUM ANIMALIS LACTIS
     Indication: Product used for unknown indication
     Dosage: UNK, QD
     Route: 048
  16. ROSUVASTATIN [Concomitant]
     Active Substance: ROSUVASTATIN
     Indication: Blood cholesterol
     Dosage: 20 MG, QD
     Route: 048
  17. CADUET [Concomitant]
     Active Substance: AMLODIPINE BESYLATE\ATORVASTATIN CALCIUM
     Indication: Product used for unknown indication
     Dosage: 5-10 MG TABLET

REACTIONS (2)
  - Drug effect less than expected [Recovering/Resolving]
  - Dysuria [Unknown]
